FAERS Safety Report 6994454-4 (Version None)
Quarter: 2010Q3

REPORT INFORMATION
  Report Type: 
  Country: None (occurrence: None)
  Receive Date: 20100917
  Receipt Date: 20100907
  Transmission Date: 20110219
  Serious: Yes (Other)
  Sender: FDA-Public Use
  Company Number: JP-JNJFOC-20100801892

PATIENT
  Age: 58 Year
  Sex: Female

DRUGS (4)
  1. DOXIL [Suspect]
     Indication: OVARIAN CANCER RECURRENT
     Dosage: CYCLE 4
     Route: 042
  2. DOXIL [Suspect]
     Dosage: CYCLE 2
     Route: 042
  3. DOXIL [Suspect]
     Dosage: CYCLE 3
     Route: 042
  4. DOXIL [Suspect]
     Dosage: CYCLE 1
     Route: 042

REACTIONS (1)
  - ULCER [None]
